FAERS Safety Report 18344266 (Version 1)
Quarter: 2020Q4

REPORT INFORMATION
  Report Type: Spontaneous
  Country: US (occurrence: US)
  Receive Date: 20201002
  Receipt Date: 20201002
  Transmission Date: 20210114
  Serious: Yes (Hospitalization)
  Sender: FDA-Public Use
  Company Number: None

PATIENT
  Age: 10 Year
  Sex: Female

DRUGS (1)
  1. ARANESP [Suspect]
     Active Substance: DARBEPOETIN ALFA
     Dosage: OTHER STRENGTH:10MCG/0.4ML;OTHER DOSE:10MCG/O.4ML;?
     Route: 058
     Dates: start: 202001, end: 202010

REACTIONS (1)
  - End stage renal disease [None]

NARRATIVE: CASE EVENT DATE: 20200930
